FAERS Safety Report 7600434-8 (Version None)
Quarter: 2011Q3

REPORT INFORMATION
  Report Type: 
  Country: None (occurrence: None)
  Receive Date: 20110711
  Receipt Date: 20110608
  Transmission Date: 20111222
  Serious: Yes (Hospitalization)
  Sender: FDA-Public Use
  Company Number: PHHO2009DE04436

PATIENT
  Sex: Female
  Weight: 94 kg

DRUGS (2)
  1. METHOTREXATE [Concomitant]
  2. ILARIS [Suspect]
     Indication: RHEUMATOID ARTHRITIS
     Dosage: 300MG / 2 WEEKS
     Route: 058
     Dates: start: 20071205

REACTIONS (2)
  - ERYSIPELAS [None]
  - BLISTER [None]
